FAERS Safety Report 23732215 (Version 1)
Quarter: 2024Q2

REPORT INFORMATION
  Report Type: Spontaneous
  Country: US (occurrence: None)
  Receive Date: 20240410
  Receipt Date: 20240410
  Transmission Date: 20240715
  Serious: No
  Sender: FDA-Public Use
  Company Number: None

PATIENT
  Age: 67 Year
  Sex: Male
  Weight: 83.25 kg

DRUGS (6)
  1. GABAPENTIN [Suspect]
     Active Substance: GABAPENTIN
     Indication: Nerve injury
     Dosage: 1 CAPSULE EVERY 8 HOURS ORAL?
     Route: 048
     Dates: start: 20240313, end: 20240407
  2. GABAPENTIN [Suspect]
     Active Substance: GABAPENTIN
     Indication: Post procedural complication
  3. OXYCODONE [Concomitant]
  4. Stimulant [Concomitant]
  5. ASPIRIN [Concomitant]
  6. Methocarbomol [Concomitant]

REACTIONS (2)
  - Anal incontinence [None]
  - Urinary incontinence [None]

NARRATIVE: CASE EVENT DATE: 20240410
